FAERS Safety Report 4615946-9 (Version None)
Quarter: 2005Q1

REPORT INFORMATION
  Report Type: 
  Country: None (occurrence: None)
  Receive Date: 20050318
  Receipt Date: 20050304
  Transmission Date: 20050727
  Serious: Yes (Hospitalization)
  Sender: FDA-Public Use
  Company Number: DSA_26072_2005

PATIENT
  Age: 85 Year
  Sex: Male

DRUGS (15)
  1. DILTIAZEM HCL [Suspect]
     Dosage: 2 DF Q DAY PO
     Route: 048
     Dates: start: 20040612, end: 20040628
  2. DILTIAZEM HCL [Suspect]
     Dosage: DF
     Route: 048
     Dates: start: 20040707, end: 20040709
  3. MUCOMYST [Concomitant]
  4. OMIX [Concomitant]
  5. DIAFUSOR [Concomitant]
  6. LASILIX [Concomitant]
  7. PANTOPRAZOLE SODIUM [Concomitant]
  8. LORAZEPAM [Concomitant]
  9. MOPRAL [Concomitant]
  10. ENALAPRIL MALEATE AND HYDROCHLOROTHIAZIDE [Concomitant]
  11. FENOFIBRATE [Concomitant]
  12. TANAKAN [Concomitant]
  13. TANGANIL [Concomitant]
  14. PIASCLEDINE [Concomitant]
  15. PROPOFAN [Concomitant]

REACTIONS (15)
  - ACUTE GENERALISED EXANTHEMATOUS PUSTULOSIS [None]
  - BODY TEMPERATURE INCREASED [None]
  - C-REACTIVE PROTEIN INCREASED [None]
  - CONDITION AGGRAVATED [None]
  - CONJUNCTIVITIS [None]
  - EOSINOPHIL COUNT INCREASED [None]
  - EXANTHEM [None]
  - EYE PRURITUS [None]
  - INFLAMMATION [None]
  - PHARYNX DISCOMFORT [None]
  - PRURITUS [None]
  - PURPURA [None]
  - RASH [None]
  - RASH PRURITIC [None]
  - SKIN LESION [None]
